FAERS Safety Report 21424044 (Version 1)
Quarter: 2022Q4

REPORT INFORMATION
  Report Type: Spontaneous
  Country: US (occurrence: US)
  Receive Date: 20221007
  Receipt Date: 20221007
  Transmission Date: 20230112
  Serious: Yes (Other)
  Sender: FDA-Public Use
  Company Number: US-MYLANLABS-2022M1111874

PATIENT
  Age: 52 Year
  Sex: Female

DRUGS (15)
  1. OXALIPLATIN [Suspect]
     Active Substance: OXALIPLATIN
     Indication: Colorectal cancer
     Dosage: UNK
     Route: 065
     Dates: start: 2018, end: 201805
  2. FLUOROURACIL [Suspect]
     Active Substance: FLUOROURACIL
     Indication: Colorectal adenocarcinoma
     Dosage: UNK, CYCLE, FOLFIRI REGIMEN
     Route: 065
     Dates: start: 2018
  3. FLUOROURACIL [Suspect]
     Active Substance: FLUOROURACIL
     Indication: Colorectal cancer metastatic
  4. LEUCOVORIN [Suspect]
     Active Substance: LEUCOVORIN
     Indication: Colorectal adenocarcinoma
     Dosage: UNK, CYCLE, FOLFIRI REGIMEN
     Route: 065
     Dates: start: 2018
  5. LEUCOVORIN [Suspect]
     Active Substance: LEUCOVORIN
     Indication: Colorectal cancer metastatic
  6. IRINOTECAN [Suspect]
     Active Substance: IRINOTECAN
     Indication: Colorectal adenocarcinoma
     Dosage: UNK , CYCLE, FOLFIRI REGIMEN
     Route: 065
     Dates: start: 2018
  7. IRINOTECAN [Suspect]
     Active Substance: IRINOTECAN
     Indication: Colorectal cancer metastatic
  8. CETUXIMAB [Suspect]
     Active Substance: CETUXIMAB
     Indication: Colorectal adenocarcinoma
     Dosage: UNK, CYCLE, BIWEEKLY CYCLES
     Route: 065
     Dates: start: 201903
  9. CETUXIMAB [Suspect]
     Active Substance: CETUXIMAB
     Indication: Colorectal cancer metastatic
  10. ENCORAFENIB [Suspect]
     Active Substance: ENCORAFENIB
     Indication: Colorectal adenocarcinoma
     Dosage: UNK , CYCLE, BIWEEKLY CYCLES
     Route: 065
     Dates: start: 201903
  11. ENCORAFENIB [Suspect]
     Active Substance: ENCORAFENIB
     Indication: Colorectal cancer metastatic
  12. BINIMETINIB [Suspect]
     Active Substance: BINIMETINIB
     Indication: Colorectal adenocarcinoma
     Dosage: UNK, CYCLE, BIWEEKLY CYCLES
     Route: 065
     Dates: start: 201903
  13. BINIMETINIB [Suspect]
     Active Substance: BINIMETINIB
     Indication: Colorectal cancer metastatic
  14. BEVACIZUMAB [Suspect]
     Active Substance: BEVACIZUMAB
     Indication: Colorectal adenocarcinoma
     Dosage: UNK, CYCLE
     Route: 065
     Dates: start: 2018
  15. BEVACIZUMAB [Suspect]
     Active Substance: BEVACIZUMAB
     Indication: Colorectal cancer metastatic

REACTIONS (3)
  - Drug ineffective [Unknown]
  - Disease progression [Unknown]
  - Gastrointestinal toxicity [Unknown]

NARRATIVE: CASE EVENT DATE: 20180101
